FAERS Safety Report 9097008 (Version 1)
Quarter: 2013Q1

REPORT INFORMATION
  Report Type: Spontaneous
  Country: SA (occurrence: None)
  Receive Date: 20130123
  Receipt Date: 20130123
  Transmission Date: 20140127
  Serious: Yes (Other)
  Sender: FDA-Public Use
  Company Number: PD 184

PATIENT
  Age: 22 Year
  Sex: Female

DRUGS (1)
  1. LEVETIRACETAM [Suspect]
     Route: 048

REACTIONS (1)
  - Myoclonus [None]
